FAERS Safety Report 4705466-5 (Version None)
Quarter: 2005Q3

REPORT INFORMATION
  Report Type: 
  Country: None (occurrence: None)
  Receive Date: 20050701
  Receipt Date: 20050613
  Transmission Date: 20060218
  Serious: Yes (Hospitalization)
  Sender: FDA-Public Use
  Company Number: PHEH2005US06689

PATIENT
  Age: 54 Year
  Sex: Female
  Weight: 72 kg

DRUGS (8)
  1. ZELNORM [Suspect]
     Indication: CONSTIPATION
     Dosage: 6 MG, PRN
     Route: 048
     Dates: start: 20020909, end: 20050401
  2. AZMACORT [Concomitant]
  3. SEREVENT [Concomitant]
  4. ALBUTEROL [Concomitant]
  5. PREMPRO [Concomitant]
  6. DETROL - SLOW RELEASE [Concomitant]
  7. ZYRTEC [Concomitant]
  8. TOBRADEX [Concomitant]

REACTIONS (20)
  - ABDOMINAL DISCOMFORT [None]
  - ABDOMINAL PAIN [None]
  - ABDOMINAL TENDERNESS [None]
  - BOWEL SOUNDS ABNORMAL [None]
  - COLITIS ISCHAEMIC [None]
  - CONSTIPATION [None]
  - DIARRHOEA HAEMORRHAGIC [None]
  - FLATULENCE [None]
  - GASTROINTESTINAL NECROSIS [None]
  - HEPATOMEGALY [None]
  - HYPERAEMIA [None]
  - INTESTINAL ULCER [None]
  - LEUKOCYTOSIS [None]
  - MUCOSAL ULCERATION [None]
  - NAUSEA [None]
  - NECROSIS [None]
  - OEDEMA MUCOSAL [None]
  - SHIFT TO THE LEFT [None]
  - ULTRASOUND ABDOMEN ABNORMAL [None]
  - VOMITING [None]
